FAERS Safety Report 26117964 (Version 2)
Quarter: 2025Q4

REPORT INFORMATION
  Report Type: Spontaneous
  Country: EU (occurrence: EU)
  Receive Date: 20251203
  Receipt Date: 20251222
  Transmission Date: 20260118
  Serious: Yes (Life-Threatening, Hospitalization, Other)
  Sender: PFIZER
  Company Number: EU-MLMSERVICE-20251121-PI719820-00270-2

PATIENT
  Age: 61 Year
  Sex: Female

DRUGS (6)
  1. METHYLPREDNISOLONE [Suspect]
     Active Substance: METHYLPREDNISOLONE
     Indication: Undifferentiated connective tissue disease
     Dosage: 16 MG, 1X/DAY
     Route: 048
  2. METHYLPREDNISOLONE [Suspect]
     Active Substance: METHYLPREDNISOLONE
     Dosage: 8 MG, 1X/DAY (TAPERING)
     Route: 048
  3. METHYLPREDNISOLONE [Suspect]
     Active Substance: METHYLPREDNISOLONE
     Dosage: 4 MG, 1X/DAY ((TAPERING)
     Route: 048
  4. METHOTREXATE SODIUM [Suspect]
     Active Substance: METHOTREXATE SODIUM
     Indication: Undifferentiated connective tissue disease
     Dosage: UNK
  5. HYDROXYCHLOROQUINE [Suspect]
     Active Substance: HYDROXYCHLOROQUINE
     Indication: Undifferentiated connective tissue disease
     Dosage: 200 MG, 1X/DAY
     Route: 065
  6. DENOSUMAB [Suspect]
     Active Substance: DENOSUMAB
     Indication: Osteoporosis
     Dosage: 60 MG, (FREQ: 6 MO)
     Route: 058
     Dates: start: 201807, end: 202005

REACTIONS (7)
  - Visceral leishmaniasis [Recovered/Resolved]
  - Septic shock [Recovered/Resolved]
  - Pancytopenia [Recovered/Resolved]
  - Urinary tract infection bacterial [Recovered/Resolved]
  - Escherichia infection [Recovered/Resolved]
  - Hypogammaglobulinaemia [Recovered/Resolved]
  - Disease recurrence [Recovered/Resolved]

NARRATIVE: CASE EVENT DATE: 20180101
